FAERS Safety Report 4701315-X (Version None)
Quarter: 2005Q2

REPORT INFORMATION
  Report Type: 
  Country: None (occurrence: None)
  Receive Date: 20050624
  Receipt Date: 20050610
  Transmission Date: 20051028
  Serious: Yes (Hospitalization, Other)
  Sender: FDA-Public Use
  Company Number: 2005BI011330

PATIENT
  Age: 55 Year
  Sex: Male

DRUGS (1)
  1. AVONEX [Suspect]
     Indication: MULTIPLE SCLEROSIS
     Dosage: IM
     Route: 030
     Dates: start: 19980101, end: 20041201

REACTIONS (3)
  - BREAST CANCER FEMALE [None]
  - CEREBROVASCULAR ACCIDENT [None]
  - MULTIPLE SCLEROSIS RELAPSE [None]
